FAERS Safety Report 7900769-5 (Version None)
Quarter: 2011Q4

REPORT INFORMATION
  Report Type: 
  Country: None (occurrence: None)
  Receive Date: 20111108
  Receipt Date: 20111108
  Transmission Date: 20120403
  Serious: Yes (Hospitalization)
  Sender: FDA-Public Use
  Company Number: None

PATIENT
  Age: 76 Year
  Sex: Female
  Weight: 51 kg

DRUGS (17)
  1. ESCITALOPRAM [Concomitant]
     Route: 048
  2. TRAZODONE HCL [Concomitant]
     Route: 048
  3. CALCIUM CITRATE [Concomitant]
     Route: 048
  4. ERGOCALCIFEROL [Concomitant]
     Route: 048
  5. GABAPENTIN [Concomitant]
     Route: 048
  6. POTASSIUM CHLORIDE [Concomitant]
     Route: 048
  7. MULTI-VITAMIN [Concomitant]
     Route: 048
  8. CYCLOSPORINE OPHTH [Concomitant]
     Route: 047
  9. NITROGLYCERIN [Concomitant]
  10. FIBER LAXATIVE [Concomitant]
     Route: 048
  11. ASPIRIN [Concomitant]
     Route: 048
  12. NIACIN [Concomitant]
     Route: 048
  13. FISH OIL [Concomitant]
     Route: 048
  14. RISEDRONATE SODIUM [Concomitant]
     Route: 048
  15. SENNA [Concomitant]
     Route: 048
  16. OXYCODONE HCL [Suspect]
     Indication: BACK PAIN
     Dosage: 15 MG
     Route: 048
     Dates: start: 20110913, end: 20110913
  17. ATORVASTATIN [Concomitant]
     Route: 048

REACTIONS (6)
  - INCORRECT DOSE ADMINISTERED [None]
  - HYPERHIDROSIS [None]
  - DRUG DISPENSING ERROR [None]
  - DIZZINESS [None]
  - LETHARGY [None]
  - NAUSEA [None]
